FAERS Safety Report 5037874-X (Version None)
Quarter: 2006Q2

REPORT INFORMATION
  Report Type: 
  Country: None (occurrence: None)
  Receive Date: 20060626
  Receipt Date: 20060614
  Transmission Date: 20061013
  Serious: Yes (Hospitalization)
  Sender: FDA-Public Use
  Company Number: GXKR2006NL03422

PATIENT
  Age: 74 Year
  Sex: Female
  Weight: 78 kg

DRUGS (9)
  1. CO-TRIMOXAZOLE (NGX) (SULFAMETHOXAZOLE, TRIMETHOPRIM) TABLET, 960MG [Suspect]
     Indication: URINARY TRACT INFECTION
     Dosage: ORAL
     Route: 048
     Dates: start: 20060523, end: 20060524
  2. ACTONEL [Concomitant]
  3. SAROTEX (AMITRIPTYLINE HYDROCHLORIDE) [Concomitant]
  4. FUROSEMIDE [Concomitant]
  5. PULMICORT [Concomitant]
  6. ASPIRIN [Concomitant]
  7. PANTOZOL (PANTOPRAZOLE SODIUM) [Concomitant]
  8. TEMAZEPAM [Concomitant]
  9. ACETAMINOPHEN [Concomitant]

REACTIONS (1)
  - ENCEPHALOPATHY [None]
